FAERS Safety Report 15956742 (Version 1)
Quarter: 2019Q1

REPORT INFORMATION
  Report Type: Spontaneous
  Country: IT (occurrence: IT)
  Receive Date: 20190213
  Receipt Date: 20190213
  Transmission Date: 20190417
  Serious: Yes (Death)
  Sender: FDA-Public Use
  Company Number: IT-PFIZER INC-2019061970

PATIENT
  Age: 78 Year
  Sex: Male

DRUGS (4)
  1. DECITABINE. [Concomitant]
     Active Substance: DECITABINE
     Indication: ACUTE MYELOID LEUKAEMIA
     Dosage: 20 MG/M2, CYCLIC (FOR A TOTAL OF TWO CYCLES)
  2. IMATINIB. [Concomitant]
     Active Substance: IMATINIB MESYLATE
     Indication: ACUTE MYELOID LEUKAEMIA
     Dosage: 600 MG, DAILY
  3. IMATINIB. [Concomitant]
     Active Substance: IMATINIB MESYLATE
     Dosage: 400 MG, DAILY
  4. VORICONAZOLE. [Suspect]
     Active Substance: VORICONAZOLE
     Indication: ASPERGILLUS INFECTION
     Dosage: UNK

REACTIONS (1)
  - Drug ineffective [Fatal]
